FAERS Safety Report 15030097 (Version 1)
Quarter: 2018Q2

REPORT INFORMATION
  Report Type: Spontaneous
  Country: US (occurrence: US)
  Receive Date: 20180529
  Receipt Date: 20180529
  Transmission Date: 20180711
  Serious: Yes (Other)
  Sender: FDA-Public Use
  Company Number: None

PATIENT
  Age: 58 Year
  Sex: Male
  Weight: 72.57 kg

DRUGS (4)
  1. METHOCARBANOL 500MG TAB [Suspect]
     Active Substance: METHOCARBAMOL
     Indication: MUSCULOSKELETAL PAIN
     Dosage: ?          QUANTITY:11 DF DOSAGE FORM;?
     Route: 048
     Dates: start: 20180404, end: 20180404
  2. METHOCARBANOL 500MG TAB [Suspect]
     Active Substance: METHOCARBAMOL
     Indication: PRODUCT USED FOR UNKNOWN INDICATION
     Dosage: ?          QUANTITY:11 DF DOSAGE FORM;?
     Route: 048
     Dates: start: 20180404, end: 20180404
  3. METHOCARBANOL 500MG TAB [Suspect]
     Active Substance: METHOCARBAMOL
     Indication: MUSCLE DISORDER
     Dosage: ?          QUANTITY:11 DF DOSAGE FORM;?
     Route: 048
     Dates: start: 20180404, end: 20180404
  4. METHOCARBANOL 500MG TAB [Suspect]
     Active Substance: METHOCARBAMOL
     Indication: NECK PAIN
     Dosage: ?          QUANTITY:11 DF DOSAGE FORM;?
     Route: 048
     Dates: start: 20180404, end: 20180404

REACTIONS (6)
  - Malaise [None]
  - Abdominal pain upper [None]
  - Dry mouth [None]
  - Feeling abnormal [None]
  - Productive cough [None]
  - Retching [None]

NARRATIVE: CASE EVENT DATE: 20180404
